FAERS Safety Report 8530241-3 (Version None)
Quarter: 2012Q3

REPORT INFORMATION
  Report Type: 
  Country: None (occurrence: None)
  Receive Date: 20120723
  Receipt Date: 20120716
  Transmission Date: 20120928
  Serious: Yes (Hospitalization)
  Sender: FDA-Public Use
  Company Number: US-JNJFOC-20120703649

PATIENT
  Sex: Male
  Weight: 86.18 kg

DRUGS (3)
  1. PREDNISONE [Suspect]
     Indication: CROHN'S DISEASE
     Dates: start: 20120101
  2. REMICADE [Suspect]
     Indication: CROHN'S DISEASE
     Route: 042
     Dates: start: 20100101, end: 20111101
  3. REMICADE [Suspect]
     Route: 042
     Dates: start: 20120101, end: 20120401

REACTIONS (13)
  - VOMITING [None]
  - LOSS OF CONSCIOUSNESS [None]
  - DIARRHOEA [None]
  - DECREASED ACTIVITY [None]
  - WEIGHT DECREASED [None]
  - DRUG DOSE OMISSION [None]
  - HYPERHIDROSIS [None]
  - HYPERPHAGIA [None]
  - CHILLS [None]
  - MALAISE [None]
  - CROHN'S DISEASE [None]
  - PAIN [None]
  - PYREXIA [None]
